FAERS Safety Report 25725707 (Version 1)
Quarter: 2025Q3

REPORT INFORMATION
  Report Type: Spontaneous
  Country: IN (occurrence: IN)
  Receive Date: 20250826
  Receipt Date: 20250826
  Transmission Date: 20251021
  Serious: Yes (Hospitalization, Other)
  Sender: PHARMOBEDIENT CONSULTING, LLC
  Company Number: IN-Pharmobedient-000109

PATIENT
  Age: 35 Year
  Sex: Male

DRUGS (3)
  1. GABAPENTIN [Suspect]
     Active Substance: GABAPENTIN
     Indication: Insomnia
     Dosage: 50 CAPSULES
  2. GABAPENTIN [Suspect]
     Active Substance: GABAPENTIN
     Indication: Product used for unknown indication
     Dosage: 120 CAPSULES
  3. GABAPENTIN [Suspect]
     Active Substance: GABAPENTIN
     Indication: Anxiety
     Dosage: 50 CAPSULES

REACTIONS (4)
  - Drug withdrawal syndrome [Recovering/Resolving]
  - Weight increased [Unknown]
  - Drug dependence [Unknown]
  - Hypovitaminosis [Unknown]
